FAERS Safety Report 18503161 (Version 1)
Quarter: 2020Q4

REPORT INFORMATION
  Report Type: Report from Study
  Country: MX (occurrence: MX)
  Receive Date: 20201113
  Receipt Date: 20201113
  Transmission Date: 20210114
  Serious: Yes (Other)
  Sender: FDA-Public Use
  Company Number: NVSC2020MX106316

PATIENT
  Sex: Male
  Weight: 76 kg

DRUGS (2)
  1. ONBRIZE BREEZHALER [Suspect]
     Active Substance: INDACATEROL MALEATE
     Indication: ASTHMA
     Dosage: 1 DF, QD (STARTED 4 OR 5 YEARS AGO)
     Route: 055
     Dates: end: 201911
  2. ULTIBRO BREEZHALER [Suspect]
     Active Substance: GLYCOPYRRONIUM\INDACATEROL
     Indication: ASTHMA
     Dosage: 1 DF, QD
     Route: 055
     Dates: start: 201911, end: 20200415

REACTIONS (2)
  - Product use in unapproved indication [Unknown]
  - Respiratory disorder [Not Recovered/Not Resolved]
